FAERS Safety Report 6244715-1 (Version None)
Quarter: 2009Q2

REPORT INFORMATION
  Report Type: 
  Country: None (occurrence: None)
  Receive Date: 20090623
  Receipt Date: 20090610
  Transmission Date: 20091009
  Serious: Yes (Life-Threatening, Hospitalization)
  Sender: FDA-Public Use
  Company Number: THQ2009A03031

PATIENT
  Age: 71 Year
  Sex: Female

DRUGS (2)
  1. ROZEREM [Suspect]
     Indication: HYPERURICAEMIA
     Dosage: 8 MG (1 D), PER ORAL
     Route: 048
     Dates: start: 20090305, end: 20090401
  2. PURINASE (ALLOPURINOL) [Concomitant]

REACTIONS (1)
  - STEVENS-JOHNSON SYNDROME [None]
